FAERS Safety Report 5576883-9 (Version None)
Quarter: 2007Q4

REPORT INFORMATION
  Report Type: 
  Country: None (occurrence: None)
  Receive Date: 20071228
  Receipt Date: 20071218
  Transmission Date: 20080405
  Serious: Yes (Death)
  Sender: FDA-Public Use
  Company Number: GB-RANBAXY-2007RR-12161

PATIENT

DRUGS (4)
  1. ASPIRIN TABLETS BP 300MG [Suspect]
  2. AMLODIPINE BASICS 5MG TABLETS [Suspect]
     Dosage: 1000 MG, UNK
  3. PARACETAMOL CAPSULES 500MG [Suspect]
  4. SOTALOL HYDROCHLORIDE [Suspect]

REACTIONS (4)
  - ATRIOVENTRICULAR BLOCK FIRST DEGREE [None]
  - DEATH [None]
  - HYPOTENSION [None]
  - OVERDOSE [None]
